FAERS Safety Report 17219188 (Version 1)
Quarter: 2019Q4

REPORT INFORMATION
  Report Type: Spontaneous
  Country: US (occurrence: US)
  Receive Date: 20191231
  Receipt Date: 20191231
  Transmission Date: 20200122
  Serious: Yes (Hospitalization, Other)
  Sender: FDA-Public Use
  Company Number: NVSC2019US082113

PATIENT
  Age: 30 Year
  Sex: Male

DRUGS (1)
  1. VANCOMYCIN [Suspect]
     Active Substance: VANCOMYCIN
     Indication: SUBACUTE ENDOCARDITIS
     Dosage: UNK
     Route: 065

REACTIONS (7)
  - Rash [Unknown]
  - Leukocytosis [Unknown]
  - Pyrexia [Unknown]
  - Malaise [Unknown]
  - Lactic acidosis [Unknown]
  - Drug reaction with eosinophilia and systemic symptoms [Unknown]
  - Renal impairment [Unknown]
